FAERS Safety Report 7208579-1 (Version None)
Quarter: 2011Q1

REPORT INFORMATION
  Report Type: 
  Country: None (occurrence: None)
  Receive Date: 20110104
  Receipt Date: 20101227
  Transmission Date: 20110831
  Serious: Yes (Hospitalization)
  Sender: FDA-Public Use
  Company Number: US-SANOFI-AVENTIS-2010SA074794

PATIENT
  Age: 75 Year
  Sex: Female
  Weight: 46.7 kg

DRUGS (9)
  1. CALCIUM [Concomitant]
  2. MOBIC [Concomitant]
  3. SYNTHROID [Concomitant]
  4. MULTAQ [Suspect]
     Route: 048
     Dates: start: 20101022, end: 20101203
  5. ESTRADIOL [Concomitant]
  6. CENTRUM SILVER [Concomitant]
  7. METOPROLOL [Concomitant]
  8. ASPIRIN [Concomitant]
  9. XANAX [Concomitant]

REACTIONS (5)
  - NAUSEA [None]
  - ASTHENIA [None]
  - CHOLESTATIC LIVER INJURY [None]
  - ABDOMINAL PAIN [None]
  - FATIGUE [None]
